FAERS Safety Report 10591084 (Version 1)
Quarter: 2014Q4

REPORT INFORMATION
  Report Type: Spontaneous
  Country: CH (occurrence: CH)
  Receive Date: 20141118
  Receipt Date: 20141118
  Transmission Date: 20150529
  Serious: Yes (Other)
  Sender: FDA-Public Use
  Company Number: CH-PFIZER INC-2014313883

PATIENT
  Age: 66 Year
  Sex: Male

DRUGS (16)
  1. ENALAPRIL [Suspect]
     Active Substance: ENALAPRIL
     Dosage: 2.5 MG, 2X/DAY
     Dates: end: 20140905
  2. BUTAMIRATE [Concomitant]
     Active Substance: BUTAMIRATE
     Dosage: 15 UNK, UNK
     Dates: start: 20140725, end: 20140811
  3. ESIDREX [Concomitant]
     Active Substance: HYDROCHLOROTHIAZIDE
     Dosage: 12.5 MG, 1X/DAY
     Dates: start: 20140714, end: 20140717
  4. METOLAZONE. [Concomitant]
     Active Substance: METOLAZONE
     Dosage: 5 UNK, UNK
     Dates: start: 20140811, end: 20140815
  5. POTASSIUM [Concomitant]
     Active Substance: POTASSIUM
     Dosage: 30 MMOL, 1X/DAY IN AN INTERMITTENT WAY
     Dates: start: 201408
  6. BUTAMIRATE [Concomitant]
     Active Substance: BUTAMIRATE
     Dosage: 15 MG, 1X/DAY
     Dates: start: 20140723, end: 20140723
  7. METOLAZONE. [Concomitant]
     Active Substance: METOLAZONE
     Dosage: 5 MG, 1X/DAY
     Dates: start: 20140725, end: 20140730
  8. ALDACTONE [Suspect]
     Active Substance: SPIRONOLACTONE
     Dosage: 25 MG, 1X/DAY
     Route: 048
     Dates: end: 20140829
  9. URISPAS [Suspect]
     Active Substance: FLAVOXATE HYDROCHLORIDE
     Dosage: 200 MG, 3X/DAY
     Route: 048
     Dates: start: 20140819, end: 20140828
  10. LASIX [Suspect]
     Active Substance: FUROSEMIDE
     Dosage: 10 MG, 1X/DAY
     Route: 048
     Dates: start: 20140711, end: 20140824
  11. ALDACTONE [Suspect]
     Active Substance: SPIRONOLACTONE
     Dosage: 25 UNK, UNK
     Dates: start: 20140906
  12. ESIDREX [Concomitant]
     Active Substance: HYDROCHLOROTHIAZIDE
     Dosage: 25 UNK, UNK
     Dates: start: 20140717, end: 20140725
  13. ESIDREX [Concomitant]
     Active Substance: HYDROCHLOROTHIAZIDE
     Dosage: 12.5 UNK, UNK
     Dates: start: 20140811, end: 20140818
  14. DAFALGAN [Concomitant]
     Active Substance: ACETAMINOPHEN
     Dosage: 1000 MG, 4X/DAY
     Dates: start: 20140723
  15. ZOLPIDEM [Concomitant]
     Active Substance: ZOLPIDEM\ZOLPIDEM TARTRATE
     Dosage: 10 MG, 1X/DAY
     Dates: start: 20140805
  16. SINTROM [Concomitant]
     Active Substance: ACENOCOUMAROL
     Dosage: 1 MG, 1X/DAY

REACTIONS (1)
  - Eosinophilia [Unknown]

NARRATIVE: CASE EVENT DATE: 20140725
